FAERS Safety Report 9411928 (Version 2)
Quarter: 2013Q3

REPORT INFORMATION
  Report Type: Report from Study
  Country: DE (occurrence: DE)
  Receive Date: 20130722
  Receipt Date: 20130729
  Transmission Date: 20140515
  Serious: Yes (Other)
  Sender: FDA-Public Use
  Company Number: DE-AMGEN-DEUNI2013050656

PATIENT
  Age: 66 Year
  Sex: Female

DRUGS (2)
  1. DENOSUMAB [Suspect]
     Indication: METASTASES TO BONE
     Dosage: 120 MG, Q4WK
     Route: 058
     Dates: start: 20120518
  2. TORISEL [Concomitant]
     Dosage: 25 MG, QWK
     Route: 042
     Dates: start: 20120919

REACTIONS (1)
  - Osteonecrosis of jaw [Recovered/Resolved]
